FAERS Safety Report 16284515 (Version 1)
Quarter: 2019Q2

REPORT INFORMATION
  Report Type: Spontaneous
  Country: US (occurrence: US)
  Receive Date: 20190508
  Receipt Date: 20190508
  Transmission Date: 20190711
  Serious: No
  Sender: FDA-Public Use
  Company Number: US-TEVA-2019-US-1045113

PATIENT
  Age: 11 Month

DRUGS (1)
  1. PENICILLIN V POTASSIUM. [Suspect]
     Active Substance: PENICILLIN V POTASSIUM
     Indication: SICKLE CELL DISEASE
     Dosage: DOSE STRENGTH:  125 MG/5 ML
     Route: 065
     Dates: start: 201810

REACTIONS (2)
  - Expired product administered [Unknown]
  - Adverse event [Unknown]

NARRATIVE: CASE EVENT DATE: 201810
